FAERS Safety Report 24259070 (Version 2)
Quarter: 2024Q4

REPORT INFORMATION
  Report Type: Spontaneous
  Country: US (occurrence: US)
  Receive Date: 20240828
  Receipt Date: 20241104
  Transmission Date: 20250114
  Serious: No
  Sender: BRISTOL-MYERS SQUIBB COMPANY
  Company Number: US-BRISTOL-MYERS SQUIBB COMPANY-2024-136595

PATIENT
  Age: 67 Year
  Sex: Female

DRUGS (2)
  1. POMALYST [Suspect]
     Active Substance: POMALIDOMIDE
     Indication: Plasma cell myeloma
     Dosage: TAKE 1 CAPSULE BY MOUTH 1 TIME A DAY FOR 21 DAYS ON AND 7 DAYS OFF
     Route: 048
     Dates: start: 202407
  2. POMALYST [Suspect]
     Active Substance: POMALIDOMIDE
     Dosage: FREQUENCY-EVERY OTHER DAY FOR 21 DAYS ON AND 7 DAYS OFF
     Route: 048
     Dates: start: 202407

REACTIONS (2)
  - Rash [Unknown]
  - Off label use [Unknown]
